FAERS Safety Report 8846917 (Version 2)
Quarter: 2012Q4

REPORT INFORMATION
  Report Type: Spontaneous
  Country: US (occurrence: None)
  Receive Date: 20121016
  Receipt Date: 20121016
  Transmission Date: 20130627
  Serious: Yes (Other)
  Sender: FDA-Public Use
  Company Number: MC201200629

PATIENT
  Age: 83 Year
  Sex: Male

DRUGS (2)
  1. CLEVIPREX [Suspect]
     Route: 042
  2. AMIODARONE (AMIODARONE HYDROCHLORIDE) [Concomitant]

REACTIONS (1)
  - Atrial fibrillation [None]
